FAERS Safety Report 7116149-9 (Version None)
Quarter: 2010Q4

REPORT INFORMATION
  Report Type: 
  Country: None (occurrence: None)
  Receive Date: 20101122
  Receipt Date: 20101109
  Transmission Date: 20110411
  Serious: Yes (Hospitalization, Other)
  Sender: FDA-Public Use
  Company Number: PHHY2010FR75969

PATIENT
  Age: 50 Year
  Sex: Female

DRUGS (2)
  1. LEPONEX [Suspect]
     Dosage: 300 MG, QD
  2. RISPERDAL [Interacting]
     Dosage: UNK

REACTIONS (3)
  - CONFUSIONAL STATE [None]
  - DRUG INTERACTION [None]
  - PYREXIA [None]
